FAERS Safety Report 15811532 (Version 1)
Quarter: 2019Q1

REPORT INFORMATION
  Report Type: Other
  Country: US (occurrence: US)
  Receive Date: 20190111
  Receipt Date: 20190111
  Transmission Date: 20190417
  Serious: Yes (Other)
  Sender: FDA-Public Use
  Company Number: US-INTERCEPT-PM2019000009

PATIENT

DRUGS (1)
  1. OCALIVA [Suspect]
     Active Substance: OBETICHOLIC ACID
     Indication: PRIMARY BILIARY CHOLANGITIS
     Dosage: 5 MG, QD
     Route: 048
     Dates: start: 20181009

REACTIONS (3)
  - Deafness [Not Recovered/Not Resolved]
  - Muscle spasms [Unknown]
  - Ear discomfort [Not Recovered/Not Resolved]

NARRATIVE: CASE EVENT DATE: 201810
